FAERS Safety Report 8364554-5 (Version None)
Quarter: 2012Q2

REPORT INFORMATION
  Report Type: 
  Country: None (occurrence: None)
  Receive Date: 20120516
  Receipt Date: 20120510
  Transmission Date: 20120825
  Serious: Yes (Other)
  Sender: FDA-Public Use
  Company Number: US-BAYER-2011-086816

PATIENT
  Age: 14 Year
  Sex: Female
  Weight: 59.864 kg

DRUGS (3)
  1. CLARITIN [Concomitant]
  2. PREVACID [Concomitant]
  3. YAZ [Suspect]
     Indication: POLYCYSTIC OVARIES
     Dosage: UNK
     Route: 048
     Dates: start: 20071001, end: 20091201

REACTIONS (8)
  - CHOLECYSTITIS [None]
  - PAIN [None]
  - ANXIETY [None]
  - EMOTIONAL DISTRESS [None]
  - GALLBLADDER DISORDER [None]
  - BILIARY DYSKINESIA [None]
  - INJURY [None]
  - PSYCHOLOGICAL TRAUMA [None]
